FAERS Safety Report 5769328-7 (Version None)
Quarter: 2008Q2

REPORT INFORMATION
  Report Type: 
  Country: None (occurrence: None)
  Receive Date: 20080610
  Receipt Date: 20080527
  Transmission Date: 20081010
  Serious: No
  Sender: FDA-Public Use
  Company Number: 14206098

PATIENT
  Sex: Female

DRUGS (1)
  1. EMSAM [Suspect]
     Dosage: 6 MILLIGRAM,1 DAY TD
     Route: 062
     Dates: end: 20080401

REACTIONS (5)
  - ATAXIA [None]
  - DIZZINESS [None]
  - TOOTH DISORDER [None]
  - TYRAMINE REACTION [None]
  - URINARY TRACT INFECTION [None]
